FAERS Safety Report 16864579 (Version 1)
Quarter: 2019Q3

REPORT INFORMATION
  Report Type: Report from Study
  Country: US (occurrence: US)
  Receive Date: 20190928
  Receipt Date: 20190928
  Transmission Date: 20191005
  Serious: Yes (Other)
  Sender: FDA-Public Use
  Company Number: PHEH2019US039783

PATIENT
  Sex: Female

DRUGS (1)
  1. COSENTYX [Suspect]
     Active Substance: SECUKINUMAB
     Indication: PSORIASIS
     Dosage: 300 MG, QW FOR WEEKS 0, 1, 2, 3, AND 4 THEN ONCE EVERY 4 WEEKS
     Route: 058
     Dates: start: 20190621

REACTIONS (5)
  - Loss of consciousness [Recovered/Resolved]
  - Sinusitis [Unknown]
  - Presyncope [Recovered/Resolved]
  - Epistaxis [Unknown]
  - Retching [Unknown]
